FAERS Safety Report 10897774 (Version 1)
Quarter: 2015Q1

REPORT INFORMATION
  Report Type: Spontaneous
  Country: FR (occurrence: FR)
  Receive Date: 20150309
  Receipt Date: 20150309
  Transmission Date: 20150721
  Serious: Yes (Other)
  Sender: FDA-Public Use
  Company Number: FR-ACTAVIS-2015-04246

PATIENT
  Age: 17 Year
  Sex: Female

DRUGS (4)
  1. MIRTAZAPINE. [Concomitant]
     Active Substance: MIRTAZAPINE
     Indication: MAJOR DEPRESSION
     Dosage: 15 MG, DAILY
     Route: 065
     Dates: start: 201303
  2. IBUPROFEN (UNKNOWN) [Suspect]
     Active Substance: IBUPROFEN
     Dosage: 400 MG 4 TIMES A DAY
     Route: 065
     Dates: start: 201302
  3. IBUPROFEN (UNKNOWN) [Suspect]
     Active Substance: IBUPROFEN
     Indication: PAIN
     Dosage: 400 MG 4-5 TIMES A DAY
     Route: 065
     Dates: start: 201306
  4. IBUPROFEN (UNKNOWN) [Suspect]
     Active Substance: IBUPROFEN
     Dosage: 400 MG 8 TIMES A DAY
     Route: 065
     Dates: start: 201304

REACTIONS (10)
  - Hyperhidrosis [Unknown]
  - Drug ineffective [Unknown]
  - Tremor [Unknown]
  - Headache [Unknown]
  - Drug dependence [Unknown]
  - Intentional overdose [Unknown]
  - Anxiety [Unknown]
  - Irritability [Unknown]
  - Drug withdrawal syndrome [Unknown]
  - Social problem [Unknown]
